FAERS Safety Report 13479736 (Version 2)
Quarter: 2017Q2

REPORT INFORMATION
  Report Type: Report from Study
  Country: US (occurrence: US)
  Receive Date: 20170425
  Receipt Date: 20170428
  Transmission Date: 20170830
  Serious: Yes (Hospitalization)
  Sender: FDA-Public Use
  Company Number: US-EXELIXIS-CABO-17008934

PATIENT
  Age: 76 Year
  Sex: Male

DRUGS (11)
  1. CABOMETYX [Suspect]
     Active Substance: CABOZANTINIB S-MALATE
     Dosage: 60 MG, 2 WEEKS ON 1 WEEK OFF
     Route: 048
     Dates: start: 20170213, end: 2017
  2. AMLODIPINE [Concomitant]
     Active Substance: AMLODIPINE BESYLATE
  3. LEVOTHYROXINE. [Concomitant]
     Active Substance: LEVOTHYROXINE
  4. SIMVASTATIN. [Concomitant]
     Active Substance: SIMVASTATIN
  5. AFINITOR [Concomitant]
     Active Substance: EVEROLIMUS
  6. CARVEDILOL. [Concomitant]
     Active Substance: CARVEDILOL
  7. ACETAZOLAMID [Concomitant]
     Active Substance: ACETAZOLAMIDE
  8. CABOMETYX [Suspect]
     Active Substance: CABOZANTINIB S-MALATE
     Indication: RENAL CANCER
     Dosage: 60 MG, QD
     Route: 048
     Dates: start: 201611
  9. DOCUSATE [Concomitant]
     Active Substance: DOCUSATE
  10. CLINDAGEL [Concomitant]
     Active Substance: CLINDAMYCIN PHOSPHATE
  11. LISINOPRIL. [Concomitant]
     Active Substance: LISINOPRIL

REACTIONS (3)
  - Cataract [Unknown]
  - Thrombosis [Unknown]
  - Pulmonary thrombosis [Unknown]

NARRATIVE: CASE EVENT DATE: 201704
